FAERS Safety Report 16850760 (Version 1)
Quarter: 2019Q3

REPORT INFORMATION
  Report Type: Spontaneous
  Country: US (occurrence: US)
  Receive Date: 20190925
  Receipt Date: 20190925
  Transmission Date: 20191005
  Serious: No
  Sender: FDA-Public Use
  Company Number: US-THERAPEUTICSMD-2019TMD02030

PATIENT
  Sex: Female

DRUGS (5)
  1. CLINDAMYCIN. [Concomitant]
     Active Substance: CLINDAMYCIN
  2. IMVEXXY [Suspect]
     Active Substance: ESTRADIOL
  3. ZANAFLEX [Concomitant]
     Active Substance: TIZANIDINE HYDROCHLORIDE
  4. ASPERCREME NOS [Concomitant]
     Active Substance: MENTHOL\TROLAMINE SALICYLATE
  5. VITAMIN D [Concomitant]
     Active Substance: VITAMIN D NOS
     Route: 067

REACTIONS (4)
  - Pain [Unknown]
  - Nocturia [Unknown]
  - Burning sensation [Unknown]
  - Insomnia [Unknown]
